FAERS Safety Report 16723060 (Version 4)
Quarter: 2019Q4

REPORT INFORMATION
  Report Type: Spontaneous
  Country: CH (occurrence: CH)
  Receive Date: 20190821
  Receipt Date: 20191105
  Transmission Date: 20200122
  Serious: Yes (Death, Hospitalization, Other)
  Sender: FDA-Public Use
  Company Number: CH-REGENERON PHARMACEUTICALS, INC.-2019-48437

PATIENT

DRUGS (2)
  1. EYLEA [Suspect]
     Active Substance: AFLIBERCEPT
     Indication: NEOVASCULAR AGE-RELATED MACULAR DEGENERATION
     Dosage: DOSE AND FREQUENCY UNKNOWN; TREATED EYE UNKNOWN;
     Dates: start: 20180713
  2. EYLEA [Suspect]
     Active Substance: AFLIBERCEPT
     Dosage: DOSE AND FREQUENCY UNKNOWN; TREATED EYE UNKNOWN; TOTAL OF 9 INJECTIONS

REACTIONS (7)
  - Pneumonia aspiration [Fatal]
  - Urinary tract infection [Unknown]
  - Contusion [Unknown]
  - Subgaleal haematoma [Unknown]
  - Pyelonephritis [Recovered/Resolved]
  - Status epilepticus [Recovered/Resolved]
  - Status epilepticus [Recovered/Resolved]

NARRATIVE: CASE EVENT DATE: 20190502
